FAERS Safety Report 21685932 (Version 1)
Quarter: 2022Q4

REPORT INFORMATION
  Report Type: Report from Study
  Country: US (occurrence: US)
  Receive Date: 20221206
  Receipt Date: 20221206
  Transmission Date: 20230113
  Serious: No
  Sender: FDA-Public Use
  Company Number: US-ABBVIE-22K-163-4487792-00

PATIENT
  Age: 66 Year
  Sex: Male

DRUGS (2)
  1. HUMIRA [Suspect]
     Active Substance: ADALIMUMAB
     Indication: Psoriatic arthropathy
     Dosage: CITRATE FREE
     Route: 058
     Dates: start: 20220105
  2. HUMIRA [Suspect]
     Active Substance: ADALIMUMAB
     Indication: Psoriasis
     Dosage: CITRATE FREE
     Route: 058

REACTIONS (11)
  - Condition aggravated [Recovered/Resolved]
  - Aerophobia [Not Recovered/Not Resolved]
  - Cardiac disorder [Unknown]
  - Condition aggravated [Recovered/Resolved]
  - Condition aggravated [Recovering/Resolving]
  - Renal disorder [Unknown]
  - Poor quality sleep [Not Recovered/Not Resolved]
  - Stress [Recovered/Resolved]
  - Drug ineffective [Not Recovered/Not Resolved]
  - Hypersensitivity [Unknown]
  - Joint stiffness [Unknown]

NARRATIVE: CASE EVENT DATE: 20220701
